FAERS Safety Report 20102257 (Version 1)
Quarter: 2021Q4

REPORT INFORMATION
  Report Type: Spontaneous
  Country: CN (occurrence: CN)
  Receive Date: 20211123
  Receipt Date: 20211123
  Transmission Date: 20220303
  Serious: Yes (Other)
  Sender: FDA-Public Use
  Company Number: CN-PFIZER INC-202101558142

PATIENT
  Age: 70 Year
  Sex: Male
  Weight: 59.6 kg

DRUGS (1)
  1. LINEZOLID [Suspect]
     Active Substance: LINEZOLID
     Indication: Soft tissue infection
     Dosage: 0.6 G, 2X/DAY
     Route: 041
     Dates: start: 20211022, end: 20211025

REACTIONS (3)
  - Nausea [Recovering/Resolving]
  - Discomfort [Recovering/Resolving]
  - Tinnitus [Recovering/Resolving]

NARRATIVE: CASE EVENT DATE: 20211023
